FAERS Safety Report 5421215-X (Version None)
Quarter: 2007Q3

REPORT INFORMATION
  Report Type: 
  Country: None (occurrence: None)
  Receive Date: 20070821
  Receipt Date: 20070816
  Transmission Date: 20080115
  Serious: Yes (Other)
  Sender: FDA-Public Use
  Company Number: US-ASTRAZENECA-2007UW19846

PATIENT
  Age: 19 Year
  Sex: Female

DRUGS (3)
  1. ZOMIG [Suspect]
     Indication: MIGRAINE WITHOUT AURA
     Route: 048
     Dates: start: 20070813
  2. TOPAMAX [Concomitant]
     Indication: HEADACHE
  3. DEPO-PROVERA [Concomitant]
     Indication: CONTRACEPTION

REACTIONS (1)
  - CONVULSION [None]
